FAERS Safety Report 4393418-7 (Version None)
Quarter: 2004Q3

REPORT INFORMATION
  Report Type: 
  Country: None (occurrence: None)
  Receive Date: 20040707
  Receipt Date: 20040707
  Transmission Date: 20050211
  Serious: Yes (Other)
  Sender: FDA-Public Use
  Company Number: None

PATIENT
  Age: 56 Year
  Sex: Female
  Weight: 74.8435 kg

DRUGS (8)
  1. TRAMADOL HCL [Suspect]
     Indication: FIBROMYALGIA
     Dosage: 50 MG QID PRN
     Dates: start: 20040614, end: 20040628
  2. PREMARIN [Concomitant]
  3. HYDROCHLOROTHIAZIDE [Concomitant]
  4. DILATIAZEM [Concomitant]
  5. LOSARTEN [Concomitant]
  6. ASPIRIN [Concomitant]
  7. AMITRIPTYLENE [Concomitant]
  8. ACIPHER [Concomitant]

REACTIONS (2)
  - PHARMACEUTICAL PRODUCT COMPLAINT [None]
  - PRURITUS [None]
